FAERS Safety Report 25746096 (Version 1)
Quarter: 2025Q3

REPORT INFORMATION
  Report Type: Spontaneous
  Country: US (occurrence: US)
  Receive Date: 20250901
  Receipt Date: 20250901
  Transmission Date: 20251020
  Serious: No
  Sender: SANDOZ
  Company Number: US-SANDOZ-SDZ2023US019621

PATIENT
  Sex: Male

DRUGS (4)
  1. CLOBETASOL [Suspect]
     Active Substance: CLOBETASOL
     Indication: Psoriasis
     Route: 065
  2. KETOCONAZOLE [Suspect]
     Active Substance: KETOCONAZOLE
     Indication: Psoriasis
     Route: 065
  3. METRONIDAZOLE [Suspect]
     Active Substance: METRONIDAZOLE
     Indication: Psoriasis
     Route: 065
  4. TRIAMCINOLONE [Suspect]
     Active Substance: TRIAMCINOLONE
     Indication: Psoriasis
     Route: 065

REACTIONS (3)
  - Rash erythematous [Unknown]
  - Drug ineffective [Unknown]
  - Product use in unapproved indication [Unknown]
